FAERS Safety Report 7460702-X (Version None)
Quarter: 2011Q2

REPORT INFORMATION
  Report Type: 
  Country: None (occurrence: None)
  Receive Date: 20110505
  Receipt Date: 20110429
  Transmission Date: 20111010
  Serious: Yes (Other)
  Sender: FDA-Public Use
  Company Number: BR-US-EMD SERONO, INC.-7057012

PATIENT
  Sex: Female

DRUGS (2)
  1. RIVOTRIL [Concomitant]
  2. REBIF [Suspect]
     Indication: RELAPSING-REMITTING MULTIPLE SCLEROSIS
     Dates: start: 20060501

REACTIONS (3)
  - POLYCYSTIC OVARIES [None]
  - PROGESTERONE DECREASED [None]
  - LABYRINTHITIS [None]
